FAERS Safety Report 4681666-8 (Version None)
Quarter: 2005Q2

REPORT INFORMATION
  Report Type: 
  Country: None (occurrence: None)
  Receive Date: 20050603
  Receipt Date: 20050530
  Transmission Date: 20051028
  Serious: Yes (Disabling)
  Sender: FDA-Public Use
  Company Number: GB-MERCK-0506GBR00009

PATIENT
  Sex: Male

DRUGS (3)
  1. ZETIA [Suspect]
     Indication: CORONARY ARTERY DISEASE
     Route: 065
  2. ZETIA [Suspect]
     Indication: HYPERLIPIDAEMIA
     Route: 065
  3. [THERAPY UNSPECIFIED] [Concomitant]
     Route: 065

REACTIONS (1)
  - VASCULITIS [None]
